FAERS Safety Report 6691829-8 (Version None)
Quarter: 2010Q2

REPORT INFORMATION
  Report Type: 
  Country: None (occurrence: None)
  Receive Date: 20100422
  Receipt Date: 20100409
  Transmission Date: 20101027
  Serious: Yes (Hospitalization)
  Sender: FDA-Public Use
  Company Number: PHHY2010IE23649

PATIENT
  Sex: Female

DRUGS (2)
  1. CLOZARIL [Suspect]
     Indication: SCHIZOPHRENIA
     Dosage: UNK
     Dates: start: 20041126
  2. CLOZARIL [Suspect]
     Dosage: UNK
     Dates: start: 20100408

REACTIONS (2)
  - MENTAL IMPAIRMENT [None]
  - RENAL FAILURE [None]
